FAERS Safety Report 10042395 (Version 1)
Quarter: 2014Q1

REPORT INFORMATION
  Report Type: Spontaneous
  Country: IT (occurrence: IT)
  Receive Date: 20140327
  Receipt Date: 20140327
  Transmission Date: 20141002
  Serious: Yes (Other)
  Sender: FDA-Public Use
  Company Number: IT-ACTAVIS-2014-05608

PATIENT
  Age: 46 Year
  Sex: Male
  Weight: 60 kg

DRUGS (2)
  1. PACLITAXEL ACTAVIS [Suspect]
     Indication: BREAST NEOPLASM
     Dosage: 130 MG, 1/WEEK
     Route: 042
     Dates: start: 20131206, end: 20140117
  2. HERCEPTIN [Concomitant]
     Indication: BREAST NEOPLASM
     Dosage: 120 MG, UNK
     Route: 042
     Dates: start: 20131206, end: 20140117

REACTIONS (1)
  - Dermatitis [Recovered/Resolved]
